FAERS Safety Report 8494520-0 (Version None)
Quarter: 2012Q3

REPORT INFORMATION
  Report Type: 
  Country: None (occurrence: None)
  Receive Date: 20120709
  Receipt Date: 20120703
  Transmission Date: 20120928
  Serious: Yes (Hospitalization)
  Sender: FDA-Public Use
  Company Number: US-SANOFI-AVENTIS-2012SA047776

PATIENT
  Age: 46 Year
  Sex: Female

DRUGS (4)
  1. SOLOSTAR [Suspect]
     Dates: start: 20120501
  2. HUMALOG [Concomitant]
  3. LANTUS [Suspect]
     Route: 058
  4. LANTUS [Suspect]
     Dosage: DOSE:14 UNIT(S)
     Route: 058
     Dates: start: 20120501

REACTIONS (4)
  - GASTROINTESTINAL DISORDER [None]
  - DIARRHOEA [None]
  - BLOOD POTASSIUM DECREASED [None]
  - VOMITING [None]
